FAERS Safety Report 9310866 (Version 1)
Quarter: 2013Q2

REPORT INFORMATION
  Report Type: Spontaneous
  Country: US (occurrence: None)
  Receive Date: 20130523
  Receipt Date: 20130523
  Transmission Date: 20140414
  Serious: Yes (Other)
  Sender: FDA-Public Use
  Company Number: None

PATIENT
  Age: 15 Year
  Sex: Male
  Weight: 55.79 kg

DRUGS (1)
  1. METHYLPHENIDATE HCL EXTENDED-REL [Suspect]
     Indication: ATTENTION DEFICIT/HYPERACTIVITY DISORDER
     Route: 048
     Dates: start: 20130521, end: 20130522

REACTIONS (3)
  - Drug effect decreased [None]
  - Product substitution issue [None]
  - Therapeutic response unexpected with drug substitution [None]
